FAERS Safety Report 18066119 (Version 1)
Quarter: 2020Q3

REPORT INFORMATION
  Report Type: Spontaneous
  Country: US (occurrence: US)
  Receive Date: 20200724
  Receipt Date: 20200724
  Transmission Date: 20201103
  Serious: Yes (Hospitalization)
  Sender: FDA-Public Use
  Company Number: None

PATIENT
  Age: 7 Year
  Sex: Male
  Weight: 24.6 kg

DRUGS (3)
  1. HYDROXYUREA. [Concomitant]
     Active Substance: HYDROXYUREA
  2. PROPOFOL. [Suspect]
     Active Substance: PROPOFOL
     Indication: SEDATION
     Dosage: ?          OTHER FREQUENCY:1X;?
     Route: 042
     Dates: start: 20200709, end: 20200709
  3. SEVOFLURANE. [Suspect]
     Active Substance: SEVOFLURANE
     Indication: ANAESTHESIA
     Route: 045
     Dates: start: 20200709, end: 20200709

REACTIONS (9)
  - Acute chest syndrome [None]
  - Hyperbilirubinaemia [None]
  - Pulmonary oedema [None]
  - Lung infiltration [None]
  - Anaemia [None]
  - Pleural effusion [None]
  - Pyrexia [None]
  - Respiratory failure [None]
  - Oxygen saturation decreased [None]

NARRATIVE: CASE EVENT DATE: 20200711
